FAERS Safety Report 18886778 (Version 1)
Quarter: 2021Q1

REPORT INFORMATION
  Report Type: Report from Study
  Country: IT (occurrence: IT)
  Receive Date: 20210212
  Receipt Date: 20210212
  Transmission Date: 20210420
  Serious: Yes (Hospitalization)
  Sender: FDA-Public Use
  Company Number: IT-TEVA-2021-IT-1878412

PATIENT
  Age: 43 Year
  Sex: Female

DRUGS (9)
  1. FELISON 30 MG CAPSULE RIGIDE [Suspect]
     Active Substance: FLURAZEPAM MONOHYDROCHLORIDE
     Route: 048
     Dates: start: 20200101, end: 20201222
  2. MIRTAZAPINE. [Suspect]
     Active Substance: MIRTAZAPINE
     Route: 048
     Dates: start: 20200101, end: 20201222
  3. LARGACTIL  100 MG COMPRESSE RIVESTITE CON FILM [Suspect]
     Active Substance: CHLORPROMAZINE HYDROCHLORIDE
     Dosage: 0.5 DOSAGE FORMS
     Route: 048
     Dates: start: 20200101, end: 20201222
  4. TOPAMAX [Suspect]
     Active Substance: TOPIRAMATE
     Route: 048
     Dates: start: 20200101, end: 20201222
  5. SEROQUEL [Suspect]
     Active Substance: QUETIAPINE FUMARATE
     Dosage: 3 DOSAGE FORMS
     Route: 048
     Dates: start: 20200101, end: 20201222
  6. LANSOX [Concomitant]
     Active Substance: LANSOPRAZOLE
  7. NOAN 500 MG/100 ML GOCCE ORALI, SOLUZIONE [Suspect]
     Active Substance: DIAZEPAM
     Route: 048
     Dates: start: 20200101, end: 20201222
  8. SEREPRILE 100 MG COMPRESSE [Suspect]
     Active Substance: TIAPRIDE HYDROCHLORIDE
     Dosage: 1 DOSAGE FORMS
     Route: 048
     Dates: start: 20200101, end: 20201222
  9. CLOPIXOL 25 MG COMPRESSE RIVESTITE CON FILM [Suspect]
     Active Substance: ZUCLOPENTHIXOL
     Dosage: 0.5 DOSAGE FORMS
     Route: 048
     Dates: start: 20200101, end: 20201222

REACTIONS (4)
  - Hypotension [Recovering/Resolving]
  - Hypothermia [Recovering/Resolving]
  - Sopor [Recovering/Resolving]
  - Bradycardia [Recovering/Resolving]

NARRATIVE: CASE EVENT DATE: 20201223
